FAERS Safety Report 8484901-3 (Version None)
Quarter: 2012Q3

REPORT INFORMATION
  Report Type: 
  Country: None (occurrence: None)
  Receive Date: 20120703
  Receipt Date: 20120625
  Transmission Date: 20120928
  Serious: Yes (Other)
  Sender: FDA-Public Use
  Company Number: JP-ASTELLAS-2012JP003308

PATIENT
  Age: 31 Year
  Sex: Female
  Weight: 41 kg

DRUGS (19)
  1. PREDNISOLONE SODIUM SUCCINATE INJ [Concomitant]
     Dosage: 20 MG, UNKNOWN/D
     Route: 048
     Dates: start: 20101222, end: 20110118
  2. PREDNISOLONE SODIUM SUCCINATE INJ [Concomitant]
     Indication: COLITIS ULCERATIVE
     Dosage: 40 MG, UNKNOWN/D
     Route: 048
     Dates: end: 20100707
  3. TACROLIMUS [Suspect]
     Dosage: 1 MG, BID
     Route: 048
     Dates: start: 20100705, end: 20100707
  4. PENTASA [Concomitant]
     Indication: COLITIS ULCERATIVE
     Dosage: 4000 MG, UNKNOWN/D
     Route: 048
  5. PREDNISOLONE SODIUM SUCCINATE INJ [Concomitant]
     Dosage: 30 MG, UNKNOWN/D
     Route: 048
     Dates: start: 20101108, end: 20101115
  6. PREDNISOLONE SODIUM SUCCINATE INJ [Concomitant]
     Dosage: 20 MG, UNKNOWN/D
     Route: 048
     Dates: start: 20101116, end: 20101205
  7. PREDNISOLONE SODIUM SUCCINATE INJ [Concomitant]
     Dosage: 10 MG, UNKNOWN/D
     Route: 048
     Dates: start: 20110119, end: 20110213
  8. PREDNISOLONE SODIUM SUCCINATE INJ [Concomitant]
     Dosage: 5 MG, UNKNOWN/D
     Route: 048
     Dates: start: 20110214
  9. CEFAZOLIN SODIUM [Concomitant]
     Indication: COLITIS ULCERATIVE
     Dosage: 36 MG, UNKNOWN/D
     Route: 048
  10. TACROLIMUS [Suspect]
     Indication: COLITIS ULCERATIVE
     Dosage: 5.5 MG, BID
     Route: 048
     Dates: start: 20100713, end: 20100819
  11. TACROLIMUS [Suspect]
     Dosage: 3 MG, BID
     Route: 048
     Dates: start: 20100708, end: 20100712
  12. MERCAPTOPURINE [Concomitant]
     Indication: COLITIS ULCERATIVE
     Dosage: 20 MG, UNKNOWN/D
     Route: 048
     Dates: end: 20101206
  13. PREDNISOLONE SODIUM SUCCINATE INJ [Concomitant]
     Dosage: 15 MG, UNKNOWN/D
     Route: 048
     Dates: start: 20100729, end: 20100804
  14. SELBEX [Concomitant]
     Indication: PROPHYLAXIS
     Dosage: 100 MG, UNKNOWN/D
     Route: 048
  15. PREDNISOLONE SODIUM SUCCINATE INJ [Concomitant]
     Dosage: 5 MG, UNKNOWN/D
     Route: 048
     Dates: start: 20100902, end: 20100916
  16. PREDNISOLONE SODIUM SUCCINATE INJ [Concomitant]
     Dosage: 30 MG, UNKNOWN/D
     Route: 048
     Dates: start: 20100708, end: 20100714
  17. PREDNISOLONE SODIUM SUCCINATE INJ [Concomitant]
     Dosage: 10 MG, UNKNOWN/D
     Route: 048
     Dates: start: 20100805, end: 20100901
  18. PREDNISOLONE SODIUM SUCCINATE INJ [Concomitant]
     Dosage: 20 MG, UNKNOWN/D
     Route: 048
     Dates: start: 20100715, end: 20100728
  19. PREDNISOLONE SODIUM SUCCINATE INJ [Concomitant]
     Dosage: 40 MG, UNKNOWN/D
     Route: 048
     Dates: start: 20101206, end: 20101221

REACTIONS (1)
  - RENAL DISORDER [None]
